FAERS Safety Report 9846344 (Version 1)
Quarter: 2014Q1

REPORT INFORMATION
  Report Type: Spontaneous
  Country: US (occurrence: None)
  Receive Date: 20140122
  Receipt Date: 20140122
  Transmission Date: 20141002
  Serious: Yes (Hospitalization)
  Sender: FDA-Public Use
  Company Number: US-000898

PATIENT
  Age: 33 Year
  Sex: Male

DRUGS (17)
  1. GATTEX [Suspect]
     Indication: SHORT-BOWEL SYNDROME
     Dates: start: 20131223
  2. SOLUTION FOR PARENTERAL NUTRITION [Concomitant]
  3. INTRAVENOUS RINGERS [Concomitant]
  4. VANCOMYCIN [Concomitant]
  5. PULMOCORTISON INY [Concomitant]
  6. CALCIUM WITH VITAMIN D [Concomitant]
  7. ATIVAN [Concomitant]
  8. ZOFRAN [Concomitant]
  9. PENTASA [Concomitant]
  10. TRAZODONE [Concomitant]
  11. PREVACID [Concomitant]
  12. METHADONE [Concomitant]
  13. PERCOCET [Concomitant]
  14. MAGNESIUM GLUCONATE [Concomitant]
  15. SPIRONOLACTONE [Concomitant]
  16. EFFEXOR [Concomitant]
  17. VITAMIN D NOS [Concomitant]

REACTIONS (8)
  - Nausea [None]
  - Vomiting [None]
  - Abdominal pain upper [None]
  - Influenza like illness [None]
  - Decreased appetite [None]
  - Weight decreased [None]
  - Dehydration [None]
  - Pallor [None]
